FAERS Safety Report 15865698 (Version 1)
Quarter: 2019Q1

REPORT INFORMATION
  Report Type: Spontaneous
  Country: US (occurrence: US)
  Receive Date: 20190125
  Receipt Date: 20190125
  Transmission Date: 20190417
  Serious: No
  Sender: FDA-Public Use
  Company Number: US-BIOGEN-2019BI00686650

PATIENT
  Sex: Female

DRUGS (1)
  1. TECFIDERA [Suspect]
     Active Substance: DIMETHYL FUMARATE
     Indication: MULTIPLE SCLEROSIS
     Route: 065
     Dates: start: 20180712

REACTIONS (5)
  - Abdominal pain upper [Unknown]
  - Gingival bleeding [Unknown]
  - Multiple sclerosis relapse [Unknown]
  - Toothache [Unknown]
  - Flushing [Unknown]
